FAERS Safety Report 8872190 (Version 2)
Quarter: 2012Q4

REPORT INFORMATION
  Report Type: 
  Country: ES (occurrence: ES)
  Receive Date: 20121030
  Receipt Date: 20121107
  Transmission Date: 20130627
  Serious: Yes (Other)
  Sender: FDA-Public Use
  Company Number: ES-JNJFOC-20121011055

PATIENT
  Age: 74 Year
  Sex: Male

DRUGS (2)
  1. DUROGESIC [Suspect]
     Indication: COLON CANCER
     Dosage: once every 3 days
     Route: 062
     Dates: start: 201206, end: 20120629
  2. ZALDIAR [Interacting]
     Indication: COLON CANCER
     Dosage: three times a day
     Route: 048
     Dates: start: 201206

REACTIONS (4)
  - Hallucination [Unknown]
  - Gait disturbance [Unknown]
  - Medication error [Unknown]
  - Drug interaction [Unknown]
